FAERS Safety Report 9105775 (Version 1)
Quarter: 2013Q1

REPORT INFORMATION
  Report Type: Spontaneous
  Country: US (occurrence: US)
  Receive Date: 20130220
  Receipt Date: 20130220
  Transmission Date: 20140127
  Serious: No
  Sender: FDA-Public Use
  Company Number: US-PFIZER INC-2013063348

PATIENT
  Age: 21 Year
  Sex: Female
  Weight: 58.96 kg

DRUGS (2)
  1. ADVIL [Suspect]
     Indication: DYSMENORRHOEA
     Dosage: UNK, AS NEEDED
     Route: 048
     Dates: start: 2012
  2. ADVIL [Suspect]
     Dosage: 2 DF, UNK

REACTIONS (2)
  - Overdose [Unknown]
  - Drug ineffective [Unknown]
